FAERS Safety Report 17044844 (Version 2)
Quarter: 2019Q4

REPORT INFORMATION
  Report Type: Spontaneous
  Country: IT (occurrence: IT)
  Receive Date: 20191118
  Receipt Date: 20191127
  Transmission Date: 20200122
  Serious: Yes (Hospitalization)
  Sender: FDA-Public Use
  Company Number: IT-009507513-1911ITA004803

PATIENT
  Age: 1 Year
  Sex: Female

DRUGS (2)
  1. CARDIOASPIRIN [Suspect]
     Active Substance: ASPIRIN
     Indication: ACCIDENTAL EXPOSURE TO PRODUCT
     Dosage: 1 DOSAGE FORM, TOTAL, THERAPEUTIC ERROR
     Route: 048
     Dates: start: 20191015
  2. SINEMET [Suspect]
     Active Substance: CARBIDOPA\LEVODOPA
     Dosage: 1 DOSAGE FORM, TOTAL, THERAPEUTIC ERROR
     Route: 048
     Dates: start: 20191015

REACTIONS (3)
  - Accidental exposure to product [Recovered/Resolved]
  - Hypotension [Recovered/Resolved]
  - Medication error [Recovered/Resolved]

NARRATIVE: CASE EVENT DATE: 20191015
